FAERS Safety Report 8250823-6 (Version None)
Quarter: 2012Q2

REPORT INFORMATION
  Report Type: 
  Country: None (occurrence: None)
  Receive Date: 20120402
  Receipt Date: 20120313
  Transmission Date: 20120825
  Serious: Yes (Hospitalization)
  Sender: FDA-Public Use
  Company Number: US-ROCHE-1036551

PATIENT
  Age: 70 Year
  Sex: Male
  Weight: 97.7 kg

DRUGS (17)
  1. LABETALOL HCL [Suspect]
     Indication: PRODUCT USED FOR UNKNOWN INDICATION
  2. MIRALAX [Concomitant]
  3. HYDROCHLOROTHIAZIDE [Concomitant]
  4. CELEXA [Concomitant]
  5. TERAZOSIN HCL [Concomitant]
  6. ASPIRIN [Concomitant]
  7. LIPITOR [Concomitant]
  8. TYLENOL [Concomitant]
  9. OCTREOTIDE ACETATE [Suspect]
     Indication: CARCINOID TUMOUR
     Route: 030
     Dates: start: 20110707
  10. LISINOPRIL [Concomitant]
  11. XANAX [Concomitant]
  12. AVASTIN [Suspect]
     Indication: CARCINOID TUMOUR
     Route: 042
     Dates: start: 20110707
  13. HYTRIN [Concomitant]
  14. SENNA [Concomitant]
  15. HEPARIN [Concomitant]
     Dosage: 5000 UNITS
     Route: 058
  16. NIFEDIPINE [Concomitant]
  17. PEPCID [Concomitant]

REACTIONS (3)
  - DEPRESSED LEVEL OF CONSCIOUSNESS [None]
  - CEREBROVASCULAR ACCIDENT [None]
  - HYPERNATRAEMIA [None]
